FAERS Safety Report 7151908-8 (Version None)
Quarter: 2010Q4

REPORT INFORMATION
  Report Type: 
  Country: None (occurrence: None)
  Receive Date: 20101210
  Receipt Date: 20101130
  Transmission Date: 20110411
  Serious: Yes (Hospitalization)
  Sender: FDA-Public Use
  Company Number: LT-AMGEN-LTUCT2010003636

PATIENT

DRUGS (6)
  1. DENOSUMAB [Suspect]
     Indication: METASTASES TO BONE
     Dosage: 1.7 ML, Q4WK
     Route: 058
     Dates: start: 20100223
  2. LEUPRORELIN [Concomitant]
     Dosage: UNK
     Route: 058
     Dates: start: 20080422
  3. CALCIGRAN                          /00241701/ [Concomitant]
     Dosage: 500 MG, QD
     Route: 048
     Dates: start: 20081006
  4. ACUZIDE [Concomitant]
     Dosage: 32.5 MG, QD
     Route: 048
     Dates: start: 20050101
  5. DILTIAZEM [Concomitant]
     Dosage: 180 MG, QD
     Route: 048
     Dates: start: 20050101
  6. DICLOFENACUM NATRICUM [Concomitant]
     Dosage: 100 MG, BID
     Route: 048
     Dates: start: 20100406

REACTIONS (1)
  - OSTEOMYELITIS [None]
